FAERS Safety Report 5402507-7 (Version None)
Quarter: 2007Q3

REPORT INFORMATION
  Report Type: 
  Country: None (occurrence: None)
  Receive Date: 20070801
  Receipt Date: 20060901
  Transmission Date: 20080115
  Serious: No
  Sender: FDA-Public Use
  Company Number: A0618848A

PATIENT
  Sex: Male

DRUGS (2)
  1. IMITREX [Suspect]
     Indication: MIGRAINE
  2. TYLENOL (CAPLET) [Concomitant]
     Indication: MIGRAINE

REACTIONS (1)
  - ASTHENOPIA [None]
